FAERS Safety Report 15316819 (Version 1)
Quarter: 2018Q3

REPORT INFORMATION
  Report Type: Spontaneous
  Country: CN (occurrence: CN)
  Receive Date: 20180824
  Receipt Date: 20180824
  Transmission Date: 20181010
  Serious: Yes (Life-Threatening, Other)
  Sender: FDA-Public Use
  Company Number: PHHY2018CN080691

PATIENT
  Sex: Female

DRUGS (1)
  1. FLUORESCITE [Suspect]
     Active Substance: FLUORESCEIN SODIUM
     Indication: ANGIOGRAM RETINA
     Dosage: 0.5 G, ONCE/SINGLE
     Route: 042

REACTIONS (13)
  - Breath sounds abnormal [Unknown]
  - Coma [Unknown]
  - Chest discomfort [Unknown]
  - Blood pressure decreased [Unknown]
  - Heart rate increased [Unknown]
  - Seizure [Unknown]
  - Malaise [Unknown]
  - Loss of consciousness [Recovering/Resolving]
  - Anaphylactic shock [Recovering/Resolving]
  - Foaming at mouth [Unknown]
  - Mydriasis [Unknown]
  - Pulse abnormal [Unknown]
  - Hyperhidrosis [Unknown]

NARRATIVE: CASE EVENT DATE: 20180608
